FAERS Safety Report 7279917-9 (Version None)
Quarter: 2011Q1

REPORT INFORMATION
  Report Type: 
  Country: None (occurrence: None)
  Receive Date: 20110208
  Receipt Date: 20101227
  Transmission Date: 20110831
  Serious: Yes (Other)
  Sender: FDA-Public Use
  Company Number: US-BAYER-201037649NA

PATIENT
  Sex: Female
  Weight: 55 kg

DRUGS (2)
  1. YAZ [Suspect]
     Indication: MENSTRUAL DISORDER
     Route: 048
     Dates: start: 20061001, end: 20070615
  2. YAZ [Suspect]
     Indication: ABDOMINAL PAIN
     Route: 048
     Dates: start: 20090101, end: 20090501

REACTIONS (6)
  - HEPATOBILIARY SCAN ABNORMAL [None]
  - ANXIETY [None]
  - ABDOMINAL PAIN [None]
  - NAUSEA [None]
  - CHOLELITHIASIS [None]
  - DEPRESSED MOOD [None]
